FAERS Safety Report 8048972-0 (Version None)
Quarter: 2012Q1

REPORT INFORMATION
  Report Type: 
  Country: None (occurrence: None)
  Receive Date: 20120117
  Receipt Date: 20120110
  Transmission Date: 20120608
  Serious: No
  Sender: FDA-Public Use
  Company Number: US-PFIZER INC-2011314606

PATIENT
  Sex: Male

DRUGS (4)
  1. POTASSIUM PENICILLIN G [Suspect]
     Dosage: UNK
     Route: 041
  2. ERYTHROMYCIN [Suspect]
     Dosage: UNK
  3. AUGMENTIN '125' [Suspect]
     Dosage: UNK
  4. LEVOX [Concomitant]
     Dosage: 150 MG, 1X/DAY
     Route: 048

REACTIONS (1)
  - DRUG HYPERSENSITIVITY [None]
